FAERS Safety Report 7683774-6 (Version None)
Quarter: 2011Q3

REPORT INFORMATION
  Report Type: 
  Country: None (occurrence: None)
  Receive Date: 20110815
  Receipt Date: 20110621
  Transmission Date: 20111222
  Serious: Yes (Death)
  Sender: FDA-Public Use
  Company Number: HU-ASTELLAS-2011EU003638

PATIENT
  Sex: Female
  Weight: 50 kg

DRUGS (13)
  1. COLISTIN [Concomitant]
     Indication: SEPSIS
     Dosage: UNK IU, UNK
     Route: 042
  2. SOLU-MEDROL [Concomitant]
     Indication: SEPSIS
     Dosage: 125 MG, UNKNOWN/D
     Route: 065
  3. FUROSEMIDE [Concomitant]
     Dosage: UNK
     Route: 065
  4. AMIKACIN [Concomitant]
     Dosage: 1 G, UID/QD
     Route: 065
  5. PROPOFOL [Concomitant]
     Dosage: UNK
     Route: 065
  6. PANTOPRAZOLE SODIUM [Concomitant]
     Dosage: 40 MG, BID
     Route: 065
  7. TOBRAMYCIN [Concomitant]
     Dosage: 80 MG, TID
     Route: 065
  8. FLUCONAZOLE [Concomitant]
     Dosage: 200 MG, BID
     Route: 065
  9. VANCOMYCIN [Concomitant]
     Indication: SEPSIS
     Dosage: 0.5 G, TID
     Route: 042
  10. SUFENTANIL CITRATE [Concomitant]
     Dosage: 1 UG/ML, UNKNOWN/D
     Route: 065
  11. MYCAMINE [Suspect]
     Indication: SEPSIS
     Dosage: 100 MG, UID/QD
     Route: 042
     Dates: start: 20100927, end: 20101004
  12. SOLU-CORTEF [Concomitant]
     Dosage: 100 MG, TID
     Route: 065
  13. NOREPINEPHRINE BITARTRATE [Concomitant]
     Dosage: UNK
     Route: 042

REACTIONS (1)
  - LIVER DISORDER [None]
